FAERS Safety Report 18463650 (Version 5)
Quarter: 2021Q1

REPORT INFORMATION
  Report Type: Spontaneous
  Country: JP (occurrence: JP)
  Receive Date: 20201104
  Receipt Date: 20210323
  Transmission Date: 20210419
  Serious: Yes (Other)
  Sender: FDA-Public Use
  Company Number: JP-BRISTOL-MYERS SQUIBB COMPANY-BMS-2020-091861

PATIENT
  Age: 83 Year
  Sex: Male

DRUGS (4)
  1. LIVALO [Concomitant]
     Active Substance: PITAVASTATIN CALCIUM
     Indication: PRODUCT USED FOR UNKNOWN INDICATION
     Dosage: UNK
     Route: 048
  2. AMLODIPINE [AMLODIPINE BESILATE] [Concomitant]
     Active Substance: AMLODIPINE BESYLATE
     Indication: PRODUCT USED FOR UNKNOWN INDICATION
     Dosage: UNK
     Route: 048
  3. OPDIVO [Suspect]
     Active Substance: NIVOLUMAB
     Indication: METASTATIC RENAL CELL CARCINOMA
     Dosage: UNK
     Route: 041
  4. YERVOY [Suspect]
     Active Substance: IPILIMUMAB
     Indication: METASTATIC RENAL CELL CARCINOMA
     Dosage: UNK
     Route: 041

REACTIONS (11)
  - Cardiac failure [Unknown]
  - Diarrhoea [Unknown]
  - Hypoglycaemia [Unknown]
  - Pyrexia [Unknown]
  - Vomiting [Unknown]
  - Adrenal insufficiency [Unknown]
  - Oedema peripheral [Unknown]
  - Thyroiditis [Unknown]
  - Atrial fibrillation [Unknown]
  - Delirium [Unknown]
  - Arthralgia [Unknown]
